FAERS Safety Report 4422065-3 (Version None)
Quarter: 2004Q3

REPORT INFORMATION
  Report Type: 
  Country: None (occurrence: None)
  Receive Date: 20040729
  Receipt Date: 20040723
  Transmission Date: 20050211
  Serious: Yes (Hospitalization)
  Sender: FDA-Public Use
  Company Number: PAGL/04/06/USA

PATIENT
  Age: 73 Year
  Sex: Female
  Weight: 67.1324 kg

DRUGS (1)
  1. PANGLOBULIN [Suspect]
     Indication: IMMUNODEFICIENCY COMMON VARIABLE
     Dosage: 20 G, MONTHLY, I.V.
     Route: 042
     Dates: start: 20040722, end: 20040722

REACTIONS (2)
  - HYPERTENSIVE CRISIS [None]
  - INFUSION RELATED REACTION [None]
